FAERS Safety Report 22108160 (Version 1)
Quarter: 2023Q1

REPORT INFORMATION
  Report Type: Other
  Country: ES (occurrence: None)
  Receive Date: 20230317
  Receipt Date: 20230317
  Transmission Date: 20230417
  Serious: Yes (Other)
  Sender: FDA-Public Use
  Company Number: ES-ROCHE-3309255

PATIENT
  Age: 7 Year
  Sex: Male

DRUGS (4)
  1. VALGANCICLOVIR [Suspect]
     Active Substance: VALGANCICLOVIR
     Indication: Antiviral prophylaxis
     Route: 065
  2. GANCICLOVIR SODIUM [Suspect]
     Active Substance: GANCICLOVIR SODIUM
     Indication: Antiviral prophylaxis
     Route: 065
  3. RUXOLITINIB [Concomitant]
     Active Substance: RUXOLITINIB
  4. SIROLIMUS [Concomitant]
     Active Substance: SIROLIMUS

REACTIONS (3)
  - Cytomegalovirus infection reactivation [Unknown]
  - Off label use [Unknown]
  - Off label use [Unknown]
